FAERS Safety Report 4814338-7 (Version None)
Quarter: 2005Q4

REPORT INFORMATION
  Report Type: 
  Country: None (occurrence: None)
  Receive Date: 20051028
  Receipt Date: 20050809
  Transmission Date: 20060501
  Serious: No
  Sender: FDA-Public Use
  Company Number: US-GLAXOSMITHKLINE-A0569518A

PATIENT
  Age: 73 Year
  Sex: Female

DRUGS (6)
  1. ADVAIR DISKUS 100/50 [Suspect]
     Indication: ASTHMA
     Dosage: 1PUFF TWICE PER DAY
     Route: 055
  2. ALBUTEROL [Concomitant]
  3. TEGRETOL-XR [Concomitant]
  4. SOLATEX [Concomitant]
  5. PREVACID [Concomitant]
  6. ZETIA [Concomitant]

REACTIONS (4)
  - COUGH [None]
  - DYSPHONIA [None]
  - OESOPHAGEAL SPASM [None]
  - PHARYNGOLARYNGEAL PAIN [None]
